FAERS Safety Report 24432737 (Version 1)
Quarter: 2024Q4

REPORT INFORMATION
  Report Type: Spontaneous
  Country: CN (occurrence: CN)
  Receive Date: 20241014
  Receipt Date: 20241014
  Transmission Date: 20250115
  Serious: Yes (Other)
  Sender: PFIZER
  Company Number: CN-PFIZER INC-PV202400131950

PATIENT
  Age: 54 Year
  Sex: Male
  Weight: 66 kg

DRUGS (2)
  1. LORLATINIB [Suspect]
     Active Substance: LORLATINIB
     Indication: Targeted cancer therapy
     Dosage: 100 MG, 1X/DAY
     Route: 048
     Dates: start: 20240821, end: 20240913
  2. LORLATINIB [Suspect]
     Active Substance: LORLATINIB
     Indication: Lung adenocarcinoma

REACTIONS (2)
  - Dyslipidaemia [Recovering/Resolving]
  - Transaminases increased [Recovering/Resolving]

NARRATIVE: CASE EVENT DATE: 20240912
